FAERS Safety Report 6684372-3 (Version None)
Quarter: 2010Q2

REPORT INFORMATION
  Report Type: 
  Country: None (occurrence: None)
  Receive Date: 20100416
  Receipt Date: 20100407
  Transmission Date: 20101027
  Serious: Yes (Hospitalization)
  Sender: FDA-Public Use
  Company Number: DE-ABBOTT-10P-062-0633788-00

PATIENT
  Age: 45 Year
  Sex: Female
  Weight: 56 kg

DRUGS (15)
  1. ZEMPLAR [Suspect]
     Indication: SECONDARY HYPERTHYROIDISM
     Dosage: 1MG PER OS EVERY4WEEKS
     Dates: start: 20090520
  2. DEKRISTOL [Concomitant]
     Indication: DRUG USE FOR UNKNOWN INDICATION
     Dosage: 1CAPSULES  EVERY 4 WEEKS
     Dates: start: 20080321
  3. PHOSEX 475 [Concomitant]
     Indication: DRUG USE FOR UNKNOWN INDICATION
     Dosage: 3X2 DAILY
  4. RENAGEL 800 [Concomitant]
     Indication: DRUG USE FOR UNKNOWN INDICATION
     Dosage: 3X1 DAILY PER OS, 21PER WEEK
     Dates: start: 20081022
  5. NEOREC. 3000(ERYTHROPOETIN) [Concomitant]
     Indication: DRUG USE FOR UNKNOWN INDICATION
     Dosage: 2 PREFILLED INJECTIONS/WEEK
     Route: 058
     Dates: start: 20090717
  6. ISCOVER 75MG [Concomitant]
     Indication: DRUG USE FOR UNKNOWN INDICATION
     Dosage: PER OS 7 PER WEEK
     Dates: start: 20080220
  7. TORASEMID 200 [Concomitant]
     Indication: DRUG USE FOR UNKNOWN INDICATION
     Dosage: PER OS 3.5 PER WEEK
     Dates: start: 20080227
  8. RAMIPRIL [Concomitant]
     Indication: DRUG USE FOR UNKNOWN INDICATION
     Dosage: PER OS 2 PER WEEK
     Dates: start: 20080820
  9. LANTUS [Concomitant]
     Indication: DRUG USE FOR UNKNOWN INDICATION
     Dosage: 14IE IN THE MORNING
     Route: 058
     Dates: start: 20090102
  10. OMEP40 [Concomitant]
     Indication: DRUG USE FOR UNKNOWN INDICATION
     Dosage: PER OS 7PER WEEK
     Dates: start: 20081103
  11. RESTEX [Concomitant]
     Indication: DRUG USE FOR UNKNOWN INDICATION
     Dosage: 14PER WEEK
     Dates: start: 20081112
  12. APIDRA 100IE/ML [Concomitant]
     Indication: DRUG USE FOR UNKNOWN INDICATION
     Dosage: DEPENDING ON BLOOD GLUCOSE
     Route: 058
     Dates: start: 20090105
  13. CA ACETAT NEFRO 500 [Concomitant]
     Indication: DRUG USE FOR UNKNOWN INDICATION
     Dosage: PER OS 21 PER WEEK
     Dates: start: 20090112
  14. AULI K SACHETS [Concomitant]
     Indication: DRUG USE FOR UNKNOWN INDICATION
     Dosage: ORAL 3 PER WEEK 20-MAR-2009
  15. FERRLECIT 40MG [Concomitant]
     Indication: DRUG USE FOR UNKNOWN INDICATION
     Dosage: 3AMPOULES PER WEEK
     Route: 042
     Dates: start: 20090706

REACTIONS (1)
  - DIABETES MELLITUS INADEQUATE CONTROL [None]
